FAERS Safety Report 8283789-3 (Version None)
Quarter: 2012Q2

REPORT INFORMATION
  Report Type: 
  Country: None (occurrence: None)
  Receive Date: 20120413
  Receipt Date: 20110816
  Transmission Date: 20120825
  Serious: No
  Sender: FDA-Public Use
  Company Number: US-ASTRAZENECA-2010SE59932

PATIENT
  Sex: Female

DRUGS (12)
  1. DILTIAZEM HCL [Concomitant]
  2. MECLIZINE [Concomitant]
  3. ADVAIR DISKUS 100/50 [Concomitant]
     Dosage: 100/50 AM+PM
  4. NEXIUM [Suspect]
     Route: 048
  5. NASONEX INHALER [Concomitant]
     Dosage: ONCE DAILY
  6. TOPROL-XL [Suspect]
     Route: 048
  7. AMITRIPTYLINE HCL [Concomitant]
  8. TYLENOL (CAPLET) [Concomitant]
     Dosage: AS NEEDED
  9. CLARITIN GENERIC [Concomitant]
     Dosage: ONE DAILY
  10. LORAZEPAM [Concomitant]
  11. OMEPRAZOLE [Suspect]
     Route: 048
  12. VYTORIN [Concomitant]
     Dosage: 10/20 DAILY

REACTIONS (3)
  - DRUG DOSE OMISSION [None]
  - DRUG HYPERSENSITIVITY [None]
  - DRUG INEFFECTIVE [None]
